FAERS Safety Report 9254493 (Version 2)
Quarter: 2015Q4

REPORT INFORMATION
  Report Type: Spontaneous
  Country: BR (occurrence: BR)
  Receive Date: 20130425
  Receipt Date: 20151030
  Transmission Date: 20160305
  Serious: Yes (Other)
  Sender: FDA-Public Use
  Company Number: BR-PFIZER INC-2013127893

PATIENT
  Age: 66 Year
  Sex: Female
  Weight: 59 kg

DRUGS (3)
  1. LORAX [Suspect]
     Active Substance: LORAZEPAM
     Indication: SYNCOPE
     Dosage: UNK
     Route: 048
     Dates: start: 1998
  2. CIPRO XR [Suspect]
     Active Substance: CIPROFLOXACIN\CIPROFLOXACIN HYDROCHLORIDE
     Indication: URINARY RETENTION
     Dosage: UNK
     Dates: start: 20130228, end: 20130302
  3. FRONTAL [Suspect]
     Active Substance: ALPRAZOLAM
     Indication: HEADACHE
     Dosage: UNK, TWICE DAILY
     Route: 048
     Dates: start: 2009

REACTIONS (5)
  - Hypersensitivity [Unknown]
  - Blister [Unknown]
  - Product use issue [Not Recovered/Not Resolved]
  - Blood pressure increased [Unknown]
  - Pruritus generalised [Unknown]

NARRATIVE: CASE EVENT DATE: 2009
